FAERS Safety Report 10171820 (Version 1)
Quarter: 2014Q2

REPORT INFORMATION
  Report Type: Spontaneous
  Country: US (occurrence: None)
  Receive Date: 20140428
  Receipt Date: 20140428
  Transmission Date: 20141212
  Serious: Yes (Other)
  Sender: FDA-Public Use
  Company Number: PHEH2014US001405

PATIENT
  Age: 58 Year
  Sex: Male

DRUGS (2)
  1. LOTREL [Suspect]
     Indication: BLOOD PRESSURE INCREASED
     Dosage: UNK UKN, UNK
  2. DIOVAN (VALSARTAN) [Concomitant]

REACTIONS (3)
  - Blood pressure increased [None]
  - Headache [None]
  - Migraine [None]
